FAERS Safety Report 8211225-1 (Version None)
Quarter: 2012Q1

REPORT INFORMATION
  Report Type: 
  Country: None (occurrence: None)
  Receive Date: 20120228
  Receipt Date: 20110114
  Transmission Date: 20120608
  Serious: Yes (Hospitalization)
  Sender: FDA-Public Use
  Company Number: RB-20742-2011

PATIENT
  Age: 34 Year
  Sex: Male

DRUGS (3)
  1. HEROIN [Suspect]
     Indication: PRODUCT USED FOR UNKNOWN INDICATION
     Dosage: DOSING UNAVAILABLE
     Dates: end: 20110101
  2. SUBOXONE [Suspect]
     Indication: PRODUCT USED FOR UNKNOWN INDICATION
     Dosage: 28 MG
     Dates: start: 20110101, end: 20110101
  3. SUBOXONE [Suspect]
     Indication: PRODUCT USED FOR UNKNOWN INDICATION
     Dosage: 28 MG
     Dates: start: 20110101, end: 20110101

REACTIONS (3)
  - OVERDOSE [None]
  - SUBSTANCE ABUSE [None]
  - INTENTIONAL DRUG MISUSE [None]
